FAERS Safety Report 8596567-2 (Version None)
Quarter: 2012Q3

REPORT INFORMATION
  Report Type: 
  Country: None (occurrence: None)
  Receive Date: 20120815
  Receipt Date: 20120810
  Transmission Date: 20120928
  Serious: Yes (Hospitalization, Other)
  Sender: FDA-Public Use
  Company Number: US-JNJFOC-20120612775

PATIENT
  Sex: Female
  Weight: 97.98 kg

DRUGS (7)
  1. CELEBREX [Concomitant]
  2. NEURONTIN [Concomitant]
  3. XARELTO [Suspect]
     Indication: THROMBOSIS
     Route: 048
     Dates: start: 20120616, end: 20120622
  4. XARELTO [Suspect]
     Indication: KNEE ARTHROPLASTY
     Route: 048
     Dates: start: 20120616, end: 20120622
  5. WELCHOL [Concomitant]
  6. LASIX [Concomitant]
  7. CYMBALTA [Concomitant]

REACTIONS (1)
  - DEEP VEIN THROMBOSIS [None]
